FAERS Safety Report 13550569 (Version 1)
Quarter: 2017Q2

REPORT INFORMATION
  Report Type: Spontaneous
  Country: US (occurrence: US)
  Receive Date: 20170516
  Receipt Date: 20170516
  Transmission Date: 20170830
  Serious: Yes (Hospitalization)
  Sender: FDA-Public Use
  Company Number: None

PATIENT
  Age: 69 Year
  Sex: Female
  Weight: 92.4 kg

DRUGS (14)
  1. HYDROMORPHONE [Suspect]
     Active Substance: HYDROMORPHONE
     Indication: FLANK PAIN
     Dosage: RECENT 0.5MG Q3HRS PRN IV
     Route: 042
  2. OXYCODONE [Suspect]
     Active Substance: OXYCODONE
     Indication: ABDOMINAL PAIN UPPER
     Dosage: RECENT 5MG Q4HRS PRN PO
     Route: 048
  3. ARIMEDEX [Concomitant]
  4. OXYCODONE [Suspect]
     Active Substance: OXYCODONE
     Indication: FLANK PAIN
     Dosage: RECENT 5MG Q4HRS PRN PO
     Route: 048
  5. VITD [Concomitant]
  6. ALBUMIN [Concomitant]
     Active Substance: ALBUMIN HUMAN
  7. NORVASC [Concomitant]
     Active Substance: AMLODIPINE BESYLATE
  8. APAP [Concomitant]
     Active Substance: ACETAMINOPHEN
  9. VITAMIN C [Concomitant]
     Active Substance: ASCORBIC ACID
  10. TUMS [Concomitant]
     Active Substance: CALCIUM CARBONATE
  11. PULMICORT TURBUHALER [Concomitant]
     Active Substance: BUDESONIDE
  12. CLONAZEPAM. [Concomitant]
     Active Substance: CLONAZEPAM
  13. LOVENOX [Concomitant]
     Active Substance: ENOXAPARIN SODIUM
  14. HYDROMORPHONE [Suspect]
     Active Substance: HYDROMORPHONE
     Indication: ABDOMINAL PAIN UPPER
     Dosage: RECENT 0.5MG Q3HRS PRN IV
     Route: 042

REACTIONS (5)
  - Shock [None]
  - Lactic acidosis [None]
  - Anaemia [None]
  - Unresponsive to stimuli [None]
  - Somnolence [None]

NARRATIVE: CASE EVENT DATE: 20170102
